FAERS Safety Report 7630896-1 (Version None)
Quarter: 2011Q3

REPORT INFORMATION
  Report Type: 
  Country: None (occurrence: None)
  Receive Date: 20110724
  Receipt Date: 20110711
  Transmission Date: 20111222
  Serious: Yes (Other)
  Sender: FDA-Public Use
  Company Number: CA-MYLANLABS-2011S1014504

PATIENT
  Age: 40 Year
  Sex: Female

DRUGS (5)
  1. APO-CITALOPRAM [Concomitant]
     Dates: start: 20030101
  2. LEVONORGESTREL + ETHINYL ESTRADIOL [Suspect]
     Indication: EPILEPSY
     Dates: start: 20110301
  3. LEVONORGESTREL + ETHINYL ESTRADIOL [Suspect]
  4. KEPPRA [Suspect]
     Indication: EPILEPSY
     Dates: start: 20050101
  5. TOPIRAMATE [Suspect]
     Indication: EPILEPSY
     Dates: start: 19960101

REACTIONS (4)
  - DIZZINESS [None]
  - VAGINAL DISCHARGE [None]
  - PETIT MAL EPILEPSY [None]
  - FEELING HOT [None]
